FAERS Safety Report 13933331 (Version 2)
Quarter: 2018Q3

REPORT INFORMATION
  Report Type: Spontaneous
  Country: US (occurrence: US)
  Receive Date: 20170904
  Receipt Date: 20180712
  Transmission Date: 20181010
  Serious: Yes (Other)
  Sender: FDA-Public Use
  Company Number: US-ASTRAZENECA-2017SE88786

PATIENT
  Age: 24898 Day
  Sex: Male

DRUGS (34)
  1. LISINOPRIL. [Concomitant]
     Active Substance: LISINOPRIL
  2. CHLORTHALIDONE. [Concomitant]
     Active Substance: CHLORTHALIDONE
  3. TRAMADOL. [Concomitant]
     Active Substance: TRAMADOL
     Dosage: HALF TAB QID
  4. METOPROLOL. [Concomitant]
     Active Substance: METOPROLOL
     Route: 048
     Dates: start: 20091206
  5. COREG [Concomitant]
     Active Substance: CARVEDILOL
     Route: 048
  6. IMDUR [Concomitant]
     Active Substance: ISOSORBIDE MONONITRATE
     Dates: start: 20091206
  7. NORVASC [Concomitant]
     Active Substance: AMLODIPINE BESYLATE
     Route: 048
     Dates: start: 20100410
  8. COLCRYS [Concomitant]
     Active Substance: COLCHICINE
     Route: 048
     Dates: start: 20160412
  9. PRILOSEC [Suspect]
     Active Substance: OMEPRAZOLE MAGNESIUM
     Indication: GASTROOESOPHAGEAL REFLUX DISEASE
     Route: 048
  10. ASCORBIC ACID. [Concomitant]
     Active Substance: ASCORBIC ACID
  11. LOVASTATIN. [Concomitant]
     Active Substance: LOVASTATIN
     Dates: start: 20091206
  12. NITROSTAT [Concomitant]
     Active Substance: NITROGLYCERIN
     Indication: CHEST PAIN
     Dosage: P.R.N.
     Route: 060
     Dates: start: 20091206
  13. LASIX [Concomitant]
     Active Substance: FUROSEMIDE
     Route: 048
     Dates: start: 20091206
  14. IPRATROPIUM [Concomitant]
     Active Substance: IPRATROPIUM
     Dosage: SPR 0.03% NAS?USE 2 SPRAYS IN EACH NOSTRIL TWO TIMES DALLY
     Dates: start: 20160412
  15. ASPIRIN. [Concomitant]
     Active Substance: ASPIRIN
     Route: 048
     Dates: start: 20091206
  16. CARDURA [Concomitant]
     Active Substance: DOXAZOSIN MESYLATE
  17. GUAIFENESIN. [Concomitant]
     Active Substance: GUAIFENESIN
     Route: 048
     Dates: start: 20091206
  18. CALCIUM ACETATE. [Concomitant]
     Active Substance: CALCIUM ACETATE
     Dosage: TAKE 2 CAPSULES BY MOUTH 3 TIMES DALLY WITH MEALS AND 1 TABLET 3 TIMES DALLY WITH SNACKS
     Dates: start: 20160412
  19. LIBRIUM [Concomitant]
     Active Substance: CHLORDIAZEPOXIDE HYDROCHLORIDE
     Indication: AGITATION
     Dosage: 25 MG P.O. Q.4 H P.R.N.
     Dates: start: 20091206
  20. CIPRO [Concomitant]
     Active Substance: CIPROFLOXACIN HYDROCHLORIDE
     Route: 048
     Dates: start: 20100410
  21. PLAVIX [Concomitant]
     Active Substance: CLOPIDOGREL BISULFATE
     Route: 048
     Dates: start: 20160412
  22. PRILOSEC [Suspect]
     Active Substance: OMEPRAZOLE MAGNESIUM
     Indication: GASTROOESOPHAGEAL REFLUX DISEASE
     Dosage: OMEPRAZOLE (GENERIC)?20 MG
     Route: 048
     Dates: start: 20141004
  23. PRILOSEC OTC [Suspect]
     Active Substance: OMEPRAZOLE MAGNESIUM
     Indication: GASTROOESOPHAGEAL REFLUX DISEASE
     Route: 048
     Dates: start: 2013, end: 2014
  24. METOPROLOL. [Concomitant]
     Active Substance: METOPROLOL
     Route: 048
  25. NIFEDIPINE. [Concomitant]
     Active Substance: NIFEDIPINE
     Route: 048
  26. MULTIVITAMINS [Concomitant]
     Active Substance: VITAMINS
  27. LIBRIUM [Concomitant]
     Active Substance: CHLORDIAZEPOXIDE HYDROCHLORIDE
     Indication: ANXIETY
     Dosage: 25 MG P.O. Q.4 H P.R.N.
     Dates: start: 20091206
  28. HUMALOG [Concomitant]
     Active Substance: INSULIN LISPRO
     Dates: start: 20091206
  29. NEXIUM [Suspect]
     Active Substance: ESOMEPRAZOLE MAGNESIUM
     Route: 048
  30. CLONIDINE. [Concomitant]
     Active Substance: CLONIDINE
     Dosage: A 24?HOUR PATCH,1 PATCH TRANSDERM EVERY 7 DAYS
     Route: 048
  31. FOLIC ACID. [Concomitant]
     Active Substance: FOLIC ACID
  32. HYDRALAZINE [Concomitant]
     Active Substance: HYDRALAZINE HYDROCHLORIDE
     Route: 048
     Dates: start: 20091206
  33. ALLOPURINOL. [Concomitant]
     Active Substance: ALLOPURINOL
     Route: 048
     Dates: start: 20091206
  34. ATORVASTATIN [Concomitant]
     Active Substance: ATORVASTATIN
     Dosage: TAKE 1 TABLET BY MOUTH EVERY NIGHT AT BEDTIME
     Route: 048
     Dates: start: 20160412

REACTIONS (4)
  - End stage renal disease [Unknown]
  - Acute kidney injury [Unknown]
  - Chronic kidney disease [Not Recovered/Not Resolved]
  - Renal failure [Not Recovered/Not Resolved]

NARRATIVE: CASE EVENT DATE: 20140417
